FAERS Safety Report 8930583 (Version 8)
Quarter: 2014Q2

REPORT INFORMATION
  Report Type: Spontaneous
  Country: US (occurrence: US)
  Receive Date: 20121128
  Receipt Date: 20140414
  Transmission Date: 20141212
  Serious: Yes (Hospitalization, Other)
  Sender: FDA-Public Use
  Company Number: US-009507513-1211USA011544

PATIENT
  Sex: Female
  Weight: 82.54 kg

DRUGS (9)
  1. FOSAMAX [Suspect]
     Indication: OSTEOPENIA
     Dosage: 70 MG, QW
     Route: 048
     Dates: start: 200512, end: 20080630
  2. ALENDRONATE SODIUM [Suspect]
     Indication: OSTEOPENIA
     Dosage: 70 MG, QW
     Route: 048
     Dates: start: 20080630, end: 200909
  3. CALCIUM (UNSPECIFIED) (+) VITAMIN D (UNSPECIFIED) [Concomitant]
     Dosage: 600 MG, QD,
     Dates: start: 1980
  4. CALCIUM (UNSPECIFIED) (+) VITAMIN D (UNSPECIFIED) [Concomitant]
     Dosage: 200 IU, QD, VIT D
     Dates: start: 1980
  5. CHOLECALCIFEROL [Concomitant]
     Dosage: 2000 IU, QD
     Dates: start: 2009
  6. CENTRUM SILVER [Concomitant]
     Dosage: 1 DF, QD
     Dates: start: 1990
  7. DIOVAN [Concomitant]
     Indication: HYPERTENSION
     Dosage: UNK
     Dates: start: 2000
  8. LOVASTATIN [Concomitant]
     Indication: BLOOD CHOLESTEROL INCREASED
     Dosage: UNK
     Dates: start: 2005
  9. SIMVASTATIN [Concomitant]
     Indication: BLOOD CHOLESTEROL INCREASED
     Dosage: UNK
     Dates: start: 200712

REACTIONS (34)
  - Femur fracture [Recovering/Resolving]
  - Intramedullary rod insertion [Unknown]
  - Intramedullary rod insertion [Unknown]
  - Road traffic accident [Unknown]
  - Tibia fracture [Unknown]
  - Open reduction of fracture [Unknown]
  - Bone graft [Unknown]
  - Radius fracture [Unknown]
  - Open reduction of fracture [Unknown]
  - Joint injury [Unknown]
  - Joint dislocation [Unknown]
  - Joint dislocation reduction [Unknown]
  - Fibula fracture [Unknown]
  - Joint injury [Unknown]
  - Femur fracture [Recovering/Resolving]
  - Impaired healing [Unknown]
  - Fracture nonunion [Unknown]
  - Osteoporosis [Unknown]
  - Medical device complication [Not Recovered/Not Resolved]
  - Vitamin D deficiency [Unknown]
  - Haematocrit decreased [Recovering/Resolving]
  - Haemoglobin decreased [Recovering/Resolving]
  - Refusal of treatment by patient [Unknown]
  - Foot operation [Unknown]
  - Lumbar spinal stenosis [Unknown]
  - Panic attack [Unknown]
  - Foot operation [Unknown]
  - Hypoxia [Unknown]
  - Spondylitis [Unknown]
  - Intervertebral disc degeneration [Unknown]
  - Muscle atrophy [Unknown]
  - Asthenia [Unknown]
  - Back pain [Not Recovered/Not Resolved]
  - Muscle spasms [Unknown]
